FAERS Safety Report 17366640 (Version 3)
Quarter: 2020Q3

REPORT INFORMATION
  Report Type: Spontaneous
  Country: HK (occurrence: HK)
  Receive Date: 20200204
  Receipt Date: 20200714
  Transmission Date: 20201102
  Serious: Yes (Death, Other)
  Sender: FDA-Public Use
  Company Number: HK-BAYER-2020-019023

PATIENT
  Age: 50 Year
  Sex: Female

DRUGS (2)
  1. VITRAKVI [Suspect]
     Active Substance: LAROTRECTINIB
     Indication: METASTASES TO LUNG
  2. VITRAKVI [Suspect]
     Active Substance: LAROTRECTINIB
     Indication: THYROID CANCER METASTATIC
     Dosage: 100 MG, BID
     Dates: start: 201910, end: 201912

REACTIONS (5)
  - Anaplastic thyroid cancer [Fatal]
  - Metastases to lung [None]
  - Anaemia [None]
  - Lymphadenopathy [None]
  - Pleural effusion [None]

NARRATIVE: CASE EVENT DATE: 201910
